FAERS Safety Report 23724723 (Version 1)
Quarter: 2024Q2

REPORT INFORMATION
  Report Type: Spontaneous
  Country: FI (occurrence: FI)
  Receive Date: 20240409
  Receipt Date: 20240409
  Transmission Date: 20240715
  Serious: Yes (Disabling)
  Sender: FDA-Public Use
  Company Number: None

PATIENT
  Age: 22 Year
  Sex: Female

DRUGS (1)
  1. CITALOPRAM [Suspect]
     Active Substance: CITALOPRAM\CITALOPRAM HYDROBROMIDE
     Indication: Depression
     Dosage: 0.5-1 TABLET IN A DAY
     Route: 048
     Dates: start: 20020904, end: 20221223

REACTIONS (11)
  - Genital hypoaesthesia [Recovered/Resolved with Sequelae]
  - Female sexual arousal disorder [Recovered/Resolved with Sequelae]
  - Irritability [Recovered/Resolved with Sequelae]
  - Anorgasmia [Recovered/Resolved with Sequelae]
  - Loss of libido [Not Recovered/Not Resolved]
  - Anhedonia [Not Recovered/Not Resolved]
  - Sexual dysfunction [Not Recovered/Not Resolved]
  - Female orgasmic disorder [Not Recovered/Not Resolved]
  - Hypoaesthesia [Not Recovered/Not Resolved]
  - Small fibre neuropathy [Not Recovered/Not Resolved]
  - Emotional poverty [Not Recovered/Not Resolved]

NARRATIVE: CASE EVENT DATE: 20020901
